FAERS Safety Report 13382128 (Version 2)
Quarter: 2017Q2

REPORT INFORMATION
  Report Type: Report from Study
  Country: BE (occurrence: BE)
  Receive Date: 20170329
  Receipt Date: 20170405
  Transmission Date: 20170830
  Serious: Yes (Hospitalization, Other)
  Sender: FDA-Public Use
  Company Number: PHHY2017BE017571

PATIENT
  Age: 61 Year
  Sex: Female
  Weight: 57.6 kg

DRUGS (2)
  1. EXEMESTANE. [Concomitant]
     Active Substance: EXEMESTANE
     Indication: BREAST CANCER
     Dosage: UNK
     Route: 065
     Dates: start: 20161212, end: 20170215
  2. AFINITOR [Suspect]
     Active Substance: EVEROLIMUS
     Indication: BREAST CANCER
     Dosage: 10 MG, QD
     Route: 048
     Dates: start: 20161212, end: 20170207

REACTIONS (22)
  - Malaise [Not Recovered/Not Resolved]
  - Fatigue [Unknown]
  - Urinary incontinence [Unknown]
  - Nausea [Unknown]
  - Stress cardiomyopathy [Recovered/Resolved]
  - Stomatitis [Unknown]
  - Vomiting [Unknown]
  - Arthralgia [Unknown]
  - Cough [Unknown]
  - Anaemia [Unknown]
  - Leukopenia [Recovered/Resolved]
  - Acute pulmonary oedema [Recovered/Resolved]
  - C-reactive protein increased [Not Recovered/Not Resolved]
  - Dyspnoea [Unknown]
  - Thrombocytopenia [Recovered/Resolved]
  - Malignant neoplasm progression [Unknown]
  - Respiratory rate increased [Unknown]
  - Oxygen saturation decreased [Not Recovered/Not Resolved]
  - Pyrexia [Not Recovered/Not Resolved]
  - Breast cancer [Unknown]
  - Dizziness [Unknown]
  - Pneumocystis jirovecii pneumonia [Not Recovered/Not Resolved]

NARRATIVE: CASE EVENT DATE: 20161217
